FAERS Safety Report 8038003-0 (Version None)
Quarter: 2012Q1

REPORT INFORMATION
  Report Type: 
  Country: None (occurrence: None)
  Receive Date: 20120111
  Receipt Date: 20111215
  Transmission Date: 20120608
  Serious: Yes (Other)
  Sender: FDA-Public Use
  Company Number: PHFR2011GB007301

PATIENT
  Sex: Female

DRUGS (3)
  1. OLANZAPINE [Suspect]
     Dosage: MATERNAL DOSE: 15 MG
     Route: 064
  2. CLOZAPINE [Suspect]
     Indication: SCHIZOPHRENIA
     Dosage: MATERNAL DOSE: 150 MG IN MORNING AND 200 MG AT NIGHT
     Route: 064
  3. CLOZAPINE [Suspect]
     Dosage: MATERNAL DOSE: 550 MG
     Route: 065

REACTIONS (2)
  - FOETAL HEART RATE DECREASED [None]
  - FOETAL EXPOSURE DURING PREGNANCY [None]
